FAERS Safety Report 6884270-6 (Version None)
Quarter: 2010Q3

REPORT INFORMATION
  Report Type: 
  Country: None (occurrence: None)
  Receive Date: 20100729
  Receipt Date: 20070605
  Transmission Date: 20110219
  Serious: No
  Sender: FDA-Public Use
  Company Number: US-PFIZER INC-2007045422

PATIENT
  Sex: Male
  Weight: 85 kg

DRUGS (3)
  1. NORVASC [Suspect]
     Indication: BLOOD PRESSURE
  2. CELEBREX [Suspect]
     Indication: SCIATICA
  3. LOTREL [Suspect]
     Indication: BLOOD PRESSURE
     Dosage: 5/20

REACTIONS (4)
  - ANXIETY [None]
  - BLOOD PRESSURE INCREASED [None]
  - CHEST DISCOMFORT [None]
  - SWELLING [None]
